FAERS Safety Report 11341643 (Version 1)
Quarter: 2015Q3

REPORT INFORMATION
  Report Type: Spontaneous
  Country: US (occurrence: None)
  Receive Date: 20150803
  Receipt Date: 20150803
  Transmission Date: 20151125
  Serious: Yes (Other)
  Sender: FDA-Public Use
  Company Number: None

PATIENT
  Age: 68 Year
  Sex: Female
  Weight: 88.45 kg

DRUGS (1)
  1. ATENOLOL/CHLORTHAL 100MG/25MG DANBURY [Suspect]
     Active Substance: ATENOLOL\CHLORTHALIDONE
     Indication: HYPERTENSION
     Dosage: 1 PILL ONCE DAILY
     Dates: start: 20150424, end: 20150802

REACTIONS (3)
  - Blood pressure inadequately controlled [None]
  - Product substitution issue [None]
  - Blood pressure increased [None]

NARRATIVE: CASE EVENT DATE: 20150802
